FAERS Safety Report 6679252-3 (Version None)
Quarter: 2010Q2

REPORT INFORMATION
  Report Type: 
  Country: None (occurrence: None)
  Receive Date: 20100409
  Receipt Date: 20100329
  Transmission Date: 20101027
  Serious: Yes (Other)
  Sender: FDA-Public Use
  Company Number: 2010AP000561

PATIENT
  Age: 44 Year
  Sex: Female

DRUGS (9)
  1. LITHIUM CARBONATE CAP [Suspect]
  2. DULOXETINE HYDROCHLORIDE [Suspect]
  3. QUETIAPINE FUMARATE [Suspect]
  4. FENTANYL [Suspect]
     Dosage: 250 UG; IV
     Route: 042
  5. ONDANSETRON [Suspect]
     Indication: PROPHYLAXIS OF NAUSEA AND VOMITING
     Dosage: 4 MG; IV
     Route: 042
  6. MIDAZOLAM HCL [Concomitant]
  7. CLONAZEPAM [Concomitant]
  8. LAMOTRIGINE [Concomitant]
  9. TOPIRAMATE [Concomitant]

REACTIONS (2)
  - DRUG INTERACTION [None]
  - SEROTONIN SYNDROME [None]
